FAERS Safety Report 6971562-5 (Version None)
Quarter: 2010Q3

REPORT INFORMATION
  Report Type: 
  Country: None (occurrence: None)
  Receive Date: 20100908
  Receipt Date: 20100830
  Transmission Date: 20110219
  Serious: Yes (Other)
  Sender: FDA-Public Use
  Company Number: IE-ASTRAZENECA-2009SE33095

PATIENT
  Sex: Female

DRUGS (13)
  1. CRESTOR [Suspect]
     Route: 048
  2. NU-SEALS ASPIRIN [Concomitant]
  3. ACETAMINOPHEN [Concomitant]
  4. METFORMIN HCL [Concomitant]
  5. ELTROXIN [Concomitant]
  6. ESOMEPRAZOLE MAGNESIUM [Concomitant]
  7. HYDROCORTONE [Concomitant]
     Dosage: 2.5 TABLETS DAILY
  8. AMIODARONE [Concomitant]
  9. LACTULOSE [Concomitant]
  10. PSC PRUNE AND SENNA [Concomitant]
  11. NYSTATIN [Concomitant]
  12. CLOTRIMAZOLE [Concomitant]
  13. FRUMIL [Concomitant]
     Dosage: I TABLET DAILY

REACTIONS (2)
  - RENAL FAILURE [None]
  - RENAL FAILURE CHRONIC [None]
